FAERS Safety Report 7049370-9 (Version None)
Quarter: 2010Q4

REPORT INFORMATION
  Report Type: 
  Country: None (occurrence: None)
  Receive Date: 20101018
  Receipt Date: 20101013
  Transmission Date: 20110411
  Serious: Yes (Life-Threatening, Other)
  Sender: FDA-Public Use
  Company Number: FR-ASTRAZENECA-2010SE48445

PATIENT
  Age: 18796 Day
  Sex: Female

DRUGS (11)
  1. DIPRIVAN [Suspect]
     Indication: GENERAL ANAESTHESIA
     Dosage: 50 MG THREE TIMES
     Route: 042
     Dates: start: 20100604, end: 20100604
  2. PAROXETINE HCL [Suspect]
     Route: 048
     Dates: start: 20100423, end: 20100605
  3. CITALOPRAM HYDROBROMIDE [Suspect]
     Route: 048
     Dates: start: 20100405, end: 20100526
  4. COUMADIN [Concomitant]
  5. FUROSEMIDE [Concomitant]
  6. NEXIUM [Concomitant]
  7. ALPRAZOLAM [Concomitant]
  8. CARDENSIEL [Concomitant]
  9. GLUCOPHAGE [Concomitant]
  10. DIAMICRON [Concomitant]
  11. TAHOR [Concomitant]

REACTIONS (2)
  - PYREXIA [None]
  - RHABDOMYOLYSIS [None]
